FAERS Safety Report 10033761 (Version 1)
Quarter: 2014Q1

REPORT INFORMATION
  Report Type: Spontaneous
  Country: US (occurrence: US)
  Receive Date: 20140325
  Receipt Date: 20140325
  Transmission Date: 20141002
  Serious: No
  Sender: FDA-Public Use
  Company Number: US-BIOGENIDEC-2014BI024726

PATIENT
  Age: 61 Year
  Sex: Female

DRUGS (11)
  1. TECFIDERA [Suspect]
     Indication: MULTIPLE SCLEROSIS
     Route: 048
  2. BAYER ASPIRIN EC LOW DOSE [Concomitant]
  3. HUMALOG [Concomitant]
  4. LANTUS SOLOSTAR [Concomitant]
  5. METFORMIN HCL [Concomitant]
  6. MYRBETRIQ [Concomitant]
  7. RISPERDAL [Concomitant]
  8. SIMVASTATIN [Concomitant]
  9. VESICARE [Concomitant]
  10. VITAMIN D [Concomitant]
  11. VITAMIN D3 [Concomitant]

REACTIONS (1)
  - Alopecia [Not Recovered/Not Resolved]
